FAERS Safety Report 11200043 (Version 1)
Quarter: 2015Q2

REPORT INFORMATION
  Report Type: Spontaneous
  Country: US (occurrence: None)
  Receive Date: 20150617
  Receipt Date: 20150617
  Transmission Date: 20150821
  Serious: Yes (Other)
  Sender: FDA-Public Use
  Company Number: None

PATIENT
  Age: 27 Year
  Sex: Female
  Weight: 91.63 kg

DRUGS (8)
  1. FARXIGA [Suspect]
     Active Substance: DAPAGLIFLOZIN PROPANEDIOL
     Indication: TYPE 2 DIABETES MELLITUS
     Dosage: 7698900 ONCE DAILY TAKEN BY MOUTH
     Route: 048
     Dates: start: 20150601, end: 20150616
  2. METFORMIN [Concomitant]
     Active Substance: METFORMIN HYDROCHLORIDE
  3. FARXIGA [Suspect]
     Active Substance: DAPAGLIFLOZIN PROPANEDIOL
     Indication: GLYCOSYLATED HAEMOGLOBIN INCREASED
     Dosage: 7698900 ONCE DAILY TAKEN BY MOUTH
     Route: 048
     Dates: start: 20150601, end: 20150616
  4. MULTIVITAMINS [Concomitant]
     Active Substance: VITAMINS
  5. ATORVASTATIN [Concomitant]
     Active Substance: ATORVASTATIN
  6. CALCIUM [Concomitant]
     Active Substance: CALCIUM
  7. VASOTEC [Concomitant]
     Active Substance: ENALAPRIL MALEATE
  8. CALTRATE 600 +D3 [Concomitant]

REACTIONS (6)
  - Vaginal infection [None]
  - General physical health deterioration [None]
  - Skin exfoliation [None]
  - Fear [None]
  - Depression [None]
  - Feeling abnormal [None]

NARRATIVE: CASE EVENT DATE: 20020615
